FAERS Safety Report 20311172 (Version 1)
Quarter: 2022Q1

REPORT INFORMATION
  Report Type: Spontaneous
  Country: US (occurrence: None)
  Receive Date: 20220107
  Receipt Date: 20220107
  Transmission Date: 20220423
  Serious: Yes (Other)
  Sender: FDA-Public Use
  Company Number: None

PATIENT
  Age: 44 Year
  Sex: Female

DRUGS (4)
  1. PRIVIGEN [Suspect]
     Active Substance: HUMAN IMMUNOGLOBULIN G
     Dosage: OTHER FREQUENCY : MONTHLY;?
     Route: 041
  2. PRIVIGEN [Suspect]
     Active Substance: HUMAN IMMUNOGLOBULIN G
     Dosage: OTHER FREQUENCY : MONTHLY;?
     Route: 041
  3. Privigen IVIG 20gm [Concomitant]
     Dates: start: 20220104, end: 20220104
  4. Privigen IVIG 40gm [Concomitant]
     Dates: start: 20220104, end: 20220104

REACTIONS (5)
  - Pruritus [None]
  - Infusion related reaction [None]
  - Urticaria [None]
  - Pruritus [None]
  - Feeling hot [None]

NARRATIVE: CASE EVENT DATE: 20220104
